FAERS Safety Report 6398161-0 (Version None)
Quarter: 2009Q4

REPORT INFORMATION
  Report Type: 
  Country: None (occurrence: None)
  Receive Date: 20091013
  Receipt Date: 20091008
  Transmission Date: 20100525
  Serious: Yes (Other)
  Sender: FDA-Public Use
  Company Number: US-BRISTOL-MYERS SQUIBB COMPANY-14811640

PATIENT
  Age: 42 Year
  Sex: Female

DRUGS (2)
  1. COUMADIN [Suspect]
     Dosage: STARTED 5 MG(UNKNOWN TO 27-SEP-2009) REDUCED TO 4 MG(27-SEP-2009-CONTINUES).
     Route: 048
  2. LOVENOX [Suspect]
     Indication: DEEP VEIN THROMBOSIS
     Dosage: ENOXAPARIN SOLN FOR INJECTION.
     Route: 058
     Dates: start: 20090923, end: 20090927

REACTIONS (2)
  - INTERNATIONAL NORMALISED RATIO INCREASED [None]
  - THROMBOPHLEBITIS [None]
